FAERS Safety Report 6500443-6 (Version None)
Quarter: 2009Q4

REPORT INFORMATION
  Report Type: 
  Country: None (occurrence: None)
  Receive Date: 20091216
  Receipt Date: 20091202
  Transmission Date: 20100525
  Serious: Yes (Hospitalization)
  Sender: FDA-Public Use
  Company Number: FR-ROCHE-662011

PATIENT
  Sex: Female
  Weight: 60 kg

DRUGS (18)
  1. BEVACIZUMAB [Suspect]
     Dosage: FORM: INFUSION, DOSAGE FORM: 5 MG/ KG, ADDITIONAL FREQUENCY: TWICE A MONTH
     Route: 042
     Dates: start: 20090907
  2. DURAGESIC-100 [Suspect]
     Indication: ABDOMINAL PAIN
     Dosage: DRUG REPORTED: DUROGESIC 150; ROUTE: TRANSCUTANEOUS
     Route: 062
     Dates: start: 20090920, end: 20090926
  3. DURAGESIC-100 [Suspect]
     Route: 062
     Dates: start: 20090905, end: 20090918
  4. ELOXATIN [Suspect]
     Dosage: FORM: GLUCOSE 5% 250 ML; 85 MG/M2, FREQUENCY REPORTED AS TWICE A MONTH
     Route: 042
     Dates: start: 20090907
  5. ELOXATIN [Suspect]
     Dosage: REDUCED DOSAGE, FORM:  GLUCOSE 5% 250 ML; 85 MG/M2, FREQUENCY REPORTED AS TWICE A MONTH
     Route: 042
     Dates: start: 20090923
  6. FOLINIC ACID [Suspect]
     Dosage: FOR TWO HOURS DAILY, FORM: GLUCOSE 5% 250 ML; 400 MG/M2, FREQUENCY REPORTED AS TWICE A MONTH
     Route: 042
     Dates: start: 20090907
  7. FOLINIC ACID [Suspect]
     Dosage: REDUCED DOSAGE, FORM: GLUCOSE 5% 250 ML; 400 MG/M2, FREQUENCY: 2 HOURS DAILY, TWICE A MONTH
     Route: 042
     Dates: start: 20090923
  8. FLUOROURACIL [Suspect]
     Dosage: 10 MINUTES DAILY, FORM: GLUCOSE 5% 50 ML; 400 MG/M2, IV BOLUS
     Route: 042
     Dates: start: 20090907
  9. FLUOROURACIL [Suspect]
     Dosage: 10 MIN DAILY, FORM: GLUCOSE 5% 50 ML; 400 MG/M2,
     Route: 042
     Dates: start: 20090923
  10. FLUOROURACIL [Suspect]
     Dosage: 2 DAYS EVERY 24 HOURS, 5-FU CONTINOUS, FORM: GLUCOSE 5% 92 ML; 1200 MG/M2, CONTINUOUS
     Route: 042
     Dates: start: 20090907
  11. FLUOROURACIL [Suspect]
     Dosage: 2 HOURS EVERY 24 HOURS, 5-FU CONTINOUS, FORM: GLUCOSE 5% 92 ML; 1200 MG/M2
     Route: 042
     Dates: start: 20090923
  12. ACTIQ [Suspect]
     Indication: ABDOMINAL PAIN
     Route: 062
     Dates: start: 20090907, end: 20090908
  13. ACTIQ [Suspect]
     Dosage: ROUTE REPORTED AS TRANSCUTANEOUS
     Route: 062
     Dates: start: 20090918, end: 20090918
  14. ACTIQ [Suspect]
     Route: 062
     Dates: start: 20090926
  15. ACTISKENAN [Concomitant]
     Indication: ABDOMINAL PAIN
     Dosage: OTHER INDICATION: SHOULDER PAIN
     Route: 048
     Dates: start: 20090831, end: 20090908
  16. XANAX [Concomitant]
     Indication: ANXIETY
     Route: 048
     Dates: start: 20090907, end: 20090924
  17. LYRICA [Concomitant]
     Indication: ANXIETY
     Route: 048
     Dates: start: 20090907, end: 20090919
  18. LYRICA [Concomitant]
     Route: 048

REACTIONS (2)
  - DRUG DEPENDENCE [None]
  - DRUG WITHDRAWAL SYNDROME [None]
